FAERS Safety Report 8119525-0 (Version None)
Quarter: 2012Q1

REPORT INFORMATION
  Report Type: 
  Country: None (occurrence: None)
  Receive Date: 20120203
  Receipt Date: 20120124
  Transmission Date: 20120608
  Serious: Yes (Other)
  Sender: FDA-Public Use
  Company Number: 1022556-2012-00007

PATIENT
  Age: 51 Year
  Sex: Male

DRUGS (2)
  1. UNISOM [Suspect]
     Indication: INSOMNIA
     Dosage: 50 MG ORAL
     Route: 048
  2. ZOLPIDEM [Concomitant]

REACTIONS (2)
  - DRUG INEFFECTIVE [None]
  - HYPERSENSITIVITY [None]
